FAERS Safety Report 19351164 (Version 2)
Quarter: 2021Q2

REPORT INFORMATION
  Report Type: Spontaneous
  Country: US (occurrence: US)
  Receive Date: 20210531
  Receipt Date: 20210604
  Transmission Date: 20210717
  Serious: No
  Sender: FDA-Public Use
  Company Number: US-SA-2021SA171210

PATIENT
  Sex: Female

DRUGS (1)
  1. DUPIXENT [Suspect]
     Active Substance: DUPILUMAB
     Indication: ILLNESS
     Dosage: 300 MG, QOW
     Route: 058

REACTIONS (7)
  - Condition aggravated [Unknown]
  - Product use in unapproved indication [Unknown]
  - Pruritus [Unknown]
  - Stress [Unknown]
  - Eczema [Unknown]
  - Anxiety [Unknown]
  - Product dose omission issue [Unknown]
